FAERS Safety Report 18773573 (Version 1)
Quarter: 2021Q1

REPORT INFORMATION
  Report Type: Spontaneous
  Country: GB (occurrence: GB)
  Receive Date: 20210122
  Receipt Date: 20210122
  Transmission Date: 20210419
  Serious: Yes (Life-Threatening, Disabling, Other)
  Sender: FDA-Public Use
  Company Number: GB-GLAXOSMITHKLINE-GB2021008102

PATIENT
  Age: 26 Year
  Sex: Female
  Weight: 82.55 kg

DRUGS (1)
  1. BECLOMETASONE DIPROPIONATE [Suspect]
     Active Substance: BECLOMETHASONE DIPROPIONATE
     Indication: ASTHMA
     Dosage: 400 ?G, BID, 2 PUFFS IN THE MORNING AND 2 IN THE EVENING.
     Route: 055
     Dates: start: 20200315, end: 20200330

REACTIONS (17)
  - Palpitations [Recovered/Resolved]
  - Irritability [Recovered/Resolved]
  - Cold sweat [Recovered/Resolved]
  - Chest pain [Recovered/Resolved]
  - Nausea [Recovered/Resolved]
  - Diarrhoea [Recovered/Resolved]
  - Respiratory rate increased [Recovered/Resolved]
  - Nail discolouration [Recovered/Resolved]
  - Arthralgia [Recovered/Resolved]
  - Feeling cold [Recovered/Resolved]
  - Cardiac disorder [Recovered/Resolved]
  - Raynaud^s phenomenon [Unknown]
  - Migraine [Recovered/Resolved]
  - Back pain [Recovered/Resolved]
  - Fatigue [Recovered/Resolved]
  - Heart rate irregular [Recovered/Resolved]
  - Pain in extremity [Recovered/Resolved]

NARRATIVE: CASE EVENT DATE: 20200320
